FAERS Safety Report 8965366 (Version 1)
Quarter: 2012Q4

REPORT INFORMATION
  Report Type: Report from Study
  Country: RO (occurrence: RO)
  Receive Date: 20121213
  Receipt Date: 20121213
  Transmission Date: 20130627
  Serious: Yes (Hospitalization)
  Sender: FDA-Public Use
  Company Number: RO-009507513-1212ROM003008

PATIENT
  Age: 55 Year
  Sex: Female

DRUGS (3)
  1. BOCEPREVIR [Suspect]
     Indication: CHRONIC HEPATITIS C
     Dosage: 2400 mg, qd
     Dates: start: 20120926
  2. PEGINTERFERON ALFA-2B [Suspect]
     Indication: CHRONIC HEPATITIS C
     Dosage: 100 Microgram, qw
     Route: 058
     Dates: start: 20120830
  3. RIBAVIRIN [Suspect]
     Indication: CHRONIC HEPATITIS C
     Dosage: 200 mg, qd
     Dates: start: 20120830

REACTIONS (7)
  - Autoimmune thyroiditis [Unknown]
  - Dizziness [Unknown]
  - Asthenia [Unknown]
  - Anaemia [Unknown]
  - Hypertension [Unknown]
  - Myocardial ischaemia [Unknown]
  - Depression [Unknown]
